FAERS Safety Report 5366398-5 (Version None)
Quarter: 2007Q2

REPORT INFORMATION
  Report Type: 
  Country: None (occurrence: None)
  Receive Date: 20070622
  Receipt Date: 20070612
  Transmission Date: 20071010
  Serious: Yes (Hospitalization)
  Sender: FDA-Public Use
  Company Number: PHBS2007GB09891

PATIENT
  Age: 41 Year
  Sex: Male

DRUGS (7)
  1. CLOZAPINE [Suspect]
     Indication: BIPOLAR DISORDER
     Dosage: 150 MG/DAY
     Route: 065
  2. CLOZAPINE [Suspect]
     Dosage: 400 MG/DAY
     Route: 065
  3. NICOTINE [Suspect]
  4. CAFFEINE CITRATE [Suspect]
  5. EPILIM [Concomitant]
     Dosage: 1000 MG, BID
     Route: 065
  6. SOLIAN [Concomitant]
     Dosage: 400 MG/DAY
     Route: 065
  7. NEO-MERCAZOLE /SCH/ [Concomitant]
     Indication: BASEDOW'S DISEASE
     Route: 065

REACTIONS (9)
  - ANTIPSYCHOTIC DRUG LEVEL BELOW THERAPEUTIC [None]
  - BIPOLAR DISORDER [None]
  - DRUG INTERACTION [None]
  - ELEVATED MOOD [None]
  - FLIGHT OF IDEAS [None]
  - INSOMNIA [None]
  - MANIA [None]
  - PERSECUTORY DELUSION [None]
  - SEDATION [None]
